FAERS Safety Report 15265333 (Version 1)
Quarter: 2018Q3

REPORT INFORMATION
  Report Type: Report from Study
  Country: ES (occurrence: ES)
  Receive Date: 20180810
  Receipt Date: 20180810
  Transmission Date: 20181010
  Serious: Yes (Hospitalization)
  Sender: FDA-Public Use
  Company Number: ES-PFIZER INC-2018316473

PATIENT
  Age: 13 Year
  Sex: Male
  Weight: 96 kg

DRUGS (9)
  1. DEXAMETHASONE. [Suspect]
     Active Substance: DEXAMETHASONE
     Indication: ACUTE LYMPHOCYTIC LEUKAEMIA
     Dosage: 20 MG, 2X/DAY
     Route: 042
     Dates: start: 20171128, end: 20171201
  2. ERWINASE /00143501/ [Suspect]
     Active Substance: ASPARAGINASE
     Indication: ACUTE LYMPHOCYTIC LEUKAEMIA
     Dosage: 40 KIU, ALTERNATE DAY
     Route: 030
     Dates: start: 20171202, end: 20171210
  3. SEPTRIN [Concomitant]
     Active Substance: SULFAMETHOXAZOLE\TRIMETHOPRIM
     Indication: PROPHYLAXIS
     Dosage: 1 DF, 1X/DAY (EVERY 24 HOURS)
     Route: 048
     Dates: start: 20170615
  4. MERCAPTOPURINE. [Suspect]
     Active Substance: MERCAPTOPURINE
     Indication: ACUTE LYMPHOCYTIC LEUKAEMIA
     Dosage: 200 MG, 1X/DAY
     Route: 048
     Dates: start: 20171129, end: 20171203
  5. CALCIUM FOLINATE [Concomitant]
     Active Substance: LEUCOVORIN CALCIUM
     Dosage: 32 MG, 1X/DAY
     Route: 042
     Dates: start: 20171129, end: 20171130
  6. ACICLOVIR ARISTO [Concomitant]
     Indication: PROPHYLAXIS
     Dosage: 400 MG, 3X/DAY (EVERY 8 HOURS)
     Route: 048
     Dates: start: 20170615
  7. CYTARABINE. [Suspect]
     Active Substance: CYTARABINE
     Indication: ACUTE LYMPHOCYTIC LEUKAEMIA
     Dosage: 4260 MG, 1X/DAY
     Route: 042
     Dates: start: 20171201, end: 20171202
  8. METHOTREXATE SODIUM. [Suspect]
     Active Substance: METHOTREXATE SODIUM
     Indication: ACUTE LYMPHOCYTIC LEUKAEMIA
     Dosage: 2150 MG, 1X/DAY
     Route: 042
     Dates: start: 20171127, end: 20171128
  9. VINCRISTINE SULFATE. [Suspect]
     Active Substance: VINCRISTINE SULFATE
     Indication: ACUTE LYMPHOCYTIC LEUKAEMIA
     Dosage: 2 MG, EVERY 5 DAYS
     Route: 042
     Dates: start: 20171128, end: 20171202

REACTIONS (4)
  - Febrile neutropenia [Recovered/Resolved]
  - Thrombocytopenia [Recovered/Resolved]
  - Hidradenitis [Recovered/Resolved]
  - Staphylococcal infection [Recovered/Resolved]

NARRATIVE: CASE EVENT DATE: 20171205
